FAERS Safety Report 6391422-0 (Version None)
Quarter: 2009Q4

REPORT INFORMATION
  Report Type: 
  Country: None (occurrence: None)
  Receive Date: 20091006
  Receipt Date: 20091006
  Transmission Date: 20100525
  Serious: Yes (Other)
  Sender: FDA-Public Use
  Company Number: None

PATIENT
  Age: 57 Year
  Sex: Female
  Weight: 68.9467 kg

DRUGS (1)
  1. BONIVA [Suspect]
     Indication: OSTEOPENIA
     Dosage: 150 MG TABLET ONCE A MONTH PO
     Route: 048
     Dates: start: 20090706, end: 20090806

REACTIONS (14)
  - ACTIVITIES OF DAILY LIVING IMPAIRED [None]
  - ASTHENIA [None]
  - BACK PAIN [None]
  - BONE PAIN [None]
  - BURSITIS [None]
  - COUGH [None]
  - DEPRESSION [None]
  - FIBROMYALGIA [None]
  - HYPOTONIA [None]
  - INSOMNIA [None]
  - MEMORY IMPAIRMENT [None]
  - MUSCULAR WEAKNESS [None]
  - OSTEOARTHRITIS [None]
  - QUALITY OF LIFE DECREASED [None]
